FAERS Safety Report 4896004-5 (Version None)
Quarter: 2006Q1

REPORT INFORMATION
  Report Type: 
  Country: None (occurrence: None)
  Receive Date: 20060126
  Receipt Date: 20060113
  Transmission Date: 20060701
  Serious: Yes (Death, Hospitalization)
  Sender: FDA-Public Use
  Company Number: 200512999BWH

PATIENT
  Age: 65 Year
  Sex: Male

DRUGS (1)
  1. TRASYLOL [Suspect]
     Indication: INTRA-THORACIC AORTIC ANEURYSM REPAIR
     Dosage: 1 ML, ONCE, INTRAVENOUS
     Route: 042
     Dates: start: 20051201

REACTIONS (2)
  - ANAPHYLACTIC REACTION [None]
  - DISSEMINATED INTRAVASCULAR COAGULATION [None]
